FAERS Safety Report 5453692-2 (Version None)
Quarter: 2007Q3

REPORT INFORMATION
  Report Type: 
  Country: None (occurrence: None)
  Receive Date: 20070917
  Receipt Date: 20070906
  Transmission Date: 20080115
  Serious: Yes (Hospitalization)
  Sender: FDA-Public Use
  Company Number: NL-NOVOPROD-267230

PATIENT
  Sex: Male

DRUGS (3)
  1. LEVEMIR [Suspect]
     Indication: DRUG USE FOR UNKNOWN INDICATION
     Route: 058
     Dates: start: 20061101
  2. PREDNISOLON                        /00016201/ [Concomitant]
     Dates: start: 20070620, end: 20070629
  3. ANTIBIOTICS [Concomitant]
     Dates: start: 20070620, end: 20070629

REACTIONS (1)
  - LUNG DISORDER [None]
